FAERS Safety Report 13046466 (Version 1)
Quarter: 2016Q4

REPORT INFORMATION
  Report Type: Spontaneous
  Country: US (occurrence: US)
  Receive Date: 20161220
  Receipt Date: 20161220
  Transmission Date: 20170207
  Serious: No
  Sender: FDA-Public Use
  Company Number: US-PFIZER INC-2016589507

PATIENT
  Age: 71 Year
  Sex: Female

DRUGS (4)
  1. NIACIN. [Suspect]
     Active Substance: NIACIN
     Dosage: UNK
  2. FENOFIBRATE. [Suspect]
     Active Substance: FENOFIBRATE
     Dosage: UNK
  3. GABAPENTIN. [Suspect]
     Active Substance: GABAPENTIN
     Dosage: UNK
  4. ESZOPICLONE. [Suspect]
     Active Substance: ESZOPICLONE
     Dosage: UNK

REACTIONS (1)
  - Drug hypersensitivity [Unknown]
